FAERS Safety Report 4334006-8 (Version None)
Quarter: 2004Q2

REPORT INFORMATION
  Report Type: 
  Country: None (occurrence: None)
  Receive Date: 20040402
  Receipt Date: 20040326
  Transmission Date: 20050107
  Serious: Yes (Death)
  Sender: FDA-Public Use
  Company Number: 2004205767FR

PATIENT
  Age: 38 Year
  Sex: Female

DRUGS (4)
  1. XANAX [Suspect]
     Indication: DRUG USE FOR UNKNOWN INDICATION
     Dosage: 0.25 MG, UNK, ORAL
     Route: 048
     Dates: start: 20031110, end: 20031110
  2. MEPRONIZINE (MEPROBAMATE) [Suspect]
     Indication: DRUG USE FOR UNKNOWN INDICATION
     Dosage: UNK, ORAL
     Route: 048
     Dates: start: 20031110, end: 20031110
  3. BUPRENORPHINE (BUPRENORPHINE) [Concomitant]
  4. PROZAC [Concomitant]

REACTIONS (4)
  - BLOOD ALCOHOL INCREASED [None]
  - DRUG ABUSER [None]
  - MULTIPLE DRUG OVERDOSE [None]
  - PULMONARY OEDEMA [None]
